FAERS Safety Report 6462211-3 (Version None)
Quarter: 2009Q4

REPORT INFORMATION
  Report Type: 
  Country: None (occurrence: None)
  Receive Date: 20091130
  Receipt Date: 20091124
  Transmission Date: 20100525
  Serious: No
  Sender: FDA-Public Use
  Company Number: US-BAYER-200931969NA

PATIENT
  Age: 62 Year
  Sex: Male
  Weight: 75 kg

DRUGS (6)
  1. LEVITRA [Suspect]
     Indication: ERECTILE DYSFUNCTION
     Dosage: UNIT DOSE: 20 MG
  2. ADVAIR DISKUS 100/50 [Concomitant]
  3. VERAPAMIL [Concomitant]
  4. DIOVAN [Concomitant]
  5. OMEPRAZOLE [Concomitant]
  6. POTASSIUM [Concomitant]

REACTIONS (7)
  - ADVERSE EVENT [None]
  - DYSPHAGIA [None]
  - HEADACHE [None]
  - LACRIMATION INCREASED [None]
  - MUSCULOSKELETAL DISCOMFORT [None]
  - NASAL CONGESTION [None]
  - OCULAR HYPERAEMIA [None]
